FAERS Safety Report 24804878 (Version 2)
Quarter: 2025Q1

REPORT INFORMATION
  Report Type: Spontaneous
  Country: FR (occurrence: FR)
  Receive Date: 20250103
  Receipt Date: 20250108
  Transmission Date: 20250408
  Serious: Yes (Hospitalization)
  Sender: ORGANON
  Company Number: None

PATIENT
  Age: 34 Year
  Sex: Female
  Weight: 58 kg

DRUGS (4)
  1. ORGALUTRAN [Suspect]
     Active Substance: GANIRELIX ACETATE
     Indication: Ovarian failure
     Dosage: 0.25 MILLIGRAM, QD
     Dates: start: 20230622, end: 20230626
  2. ESTRADIOL [Suspect]
     Active Substance: ESTRADIOL
     Indication: Ovarian failure
     Dosage: 2 PATCHES OVER 3 DAYS (100 MICROGRAMS/24 HOURS)
     Dates: start: 20230606, end: 20230614
  3. FOLLITROPIN ALFA [Suspect]
     Active Substance: FOLLITROPIN ALFA
     Indication: Ovarian failure
     Dosage: 300 INTERNATIONAL UNIT, QD (SOLUTION FOR INJECTION IN PRE-FILLED PEN)
     Dates: start: 20230617, end: 20230626
  4. TRIPTORELIN [Suspect]
     Active Substance: TRIPTORELIN
     Indication: Controlled ovarian stimulation
     Dosage: 0.2 MILLIGRAM, QD (POWDER AND SOLVENT FOR SOLUTION FOR INJECTION (S.C.))
     Dates: start: 20230627, end: 20230627

REACTIONS (1)
  - Deep vein thrombosis [Recovered/Resolved]

NARRATIVE: CASE EVENT DATE: 20230703
